FAERS Safety Report 6701967-9 (Version None)
Quarter: 2010Q2

REPORT INFORMATION
  Report Type: 
  Country: None (occurrence: None)
  Receive Date: 20100429
  Receipt Date: 20100416
  Transmission Date: 20101027
  Serious: Yes (Hospitalization)
  Sender: FDA-Public Use
  Company Number: US-ROCHE-698125

PATIENT
  Sex: Female
  Weight: 84.9 kg

DRUGS (7)
  1. TRASTUZUMAB [Suspect]
     Indication: BREAST CANCER
     Dosage: LOADING DOSE ON DAY 1 OF CYCLE 1, AS PER PROTOCOL
     Route: 042
     Dates: start: 20090903
  2. TRASTUZUMAB [Suspect]
     Dosage: LAST DOSE PRIOR TO SAE: 31 MARCH 2010, DOSE LEVEL: 6 MG/KG (MAINTAINENCE DOSE), FORM: VIALS
     Route: 042
  3. CARBOPLATIN [Suspect]
     Indication: BREAST CANCER
     Dosage: FORM: VIALS, DOSE LEVEL 6 AUC, LAST DOSE PRIOR TO SAE:16 DECEMBER 2009
     Route: 042
     Dates: start: 20090903
  4. DOCETAXEL [Suspect]
     Indication: BREAST CANCER
     Dosage: FORM: VIALS. LASTDOSE PRIOR TO SAE: 16 DEC 2009, DOSE LEVEL 75 MG/M2
     Route: 042
     Dates: start: 20090903
  5. ATIVAN [Concomitant]
     Dates: start: 20090903
  6. COMPAZINE [Concomitant]
     Dosage: DRUG NAME: COMPAZINE PRN,
     Dates: start: 20090903
  7. PRISTIQ [Concomitant]
     Dates: start: 20091216

REACTIONS (1)
  - CHEST PAIN [None]
